FAERS Safety Report 5656309-7 (Version None)
Quarter: 2008Q1

REPORT INFORMATION
  Report Type: 
  Country: None (occurrence: None)
  Receive Date: 20080309
  Receipt Date: 20071024
  Transmission Date: 20080703
  Serious: No
  Sender: FDA-Public Use
  Company Number: US-BAYER-200712512BCC

PATIENT
  Age: 23 Year
  Sex: Female
  Weight: 68 kg

DRUGS (1)
  1. ALEVE [Suspect]
     Indication: MUSCLE SPASMS
     Route: 048
     Dates: start: 20070802

REACTIONS (3)
  - BLADDER DISCOMFORT [None]
  - DYSURIA [None]
  - HEADACHE [None]
